FAERS Safety Report 6278221-5 (Version None)
Quarter: 2009Q3

REPORT INFORMATION
  Report Type: 
  Country: None (occurrence: None)
  Receive Date: 20090722
  Receipt Date: 20090630
  Transmission Date: 20100115
  Serious: Yes (Death, Hospitalization)
  Sender: FDA-Public Use
  Company Number: US-PURDUE-USA_2009_0038103

PATIENT
  Sex: Female
  Weight: 63.492 kg

DRUGS (5)
  1. OXYCONTIN [Suspect]
     Indication: BACK PAIN
     Dosage: 40 MG, BID
     Dates: start: 20020101
  2. OXYCODONE HCL [Suspect]
     Indication: BACK PAIN
     Dosage: 5 MG, BID
     Dates: start: 20020101
  3. MORPHINE SULFATE (SIMILAR TO NDA 19-516) [Suspect]
     Indication: PAIN
     Dosage: 40 MG, UNK
  4. PLAVIX [Concomitant]
     Dosage: UNK
  5. ADVAIR HFA [Concomitant]

REACTIONS (4)
  - AORTIC ANEURYSM RUPTURE [None]
  - LUNG DISORDER [None]
  - MYOCARDIAL INFARCTION [None]
  - PNEUMONIA [None]
